FAERS Safety Report 5235939-0 (Version None)
Quarter: 2007Q1

REPORT INFORMATION
  Report Type: 
  Country: None (occurrence: None)
  Receive Date: 20070212
  Receipt Date: 20070201
  Transmission Date: 20070707
  Serious: Yes (Hospitalization)
  Sender: FDA-Public Use
  Company Number: US-ROCHE-452299

PATIENT
  Age: 50 Year
  Sex: Male

DRUGS (6)
  1. PEGASYS [Suspect]
     Dosage: ROUTE ALSO REPORTED AS INJECTABLE.
     Route: 058
     Dates: start: 20060315
  2. PEGASYS [Suspect]
     Dosage: ROUTE ALSO REPORTED AS INJECTABLE.
     Route: 058
     Dates: end: 20070111
  3. RIBAVIRIN [Suspect]
     Route: 048
     Dates: start: 20060315
  4. RIBAVIRIN [Suspect]
     Route: 048
     Dates: end: 20060815
  5. TRUVADA [Concomitant]
     Route: 048
  6. SUSTIVA [Concomitant]
     Route: 048

REACTIONS (6)
  - ANAEMIA [None]
  - ASTHENIA [None]
  - BONE PAIN [None]
  - DEHYDRATION [None]
  - HEPATITIS C [None]
  - THROMBOCYTOPENIA [None]
